FAERS Safety Report 11698756 (Version 1)
Quarter: 2015Q4

REPORT INFORMATION
  Report Type: Spontaneous
  Country: US (occurrence: US)
  Receive Date: 20151104
  Receipt Date: 20151104
  Transmission Date: 20160304
  Serious: Yes (Disabling, Other)
  Sender: FDA-Public Use
  Company Number: US-CELGENEUS-USA-2015064880

PATIENT
  Age: 59 Year
  Sex: Male

DRUGS (7)
  1. REVLIMID [Suspect]
     Active Substance: LENALIDOMIDE
     Indication: PLASMA CELL MYELOMA
     Dosage: 25 MILLIGRAM
     Route: 048
     Dates: start: 20150310
  2. ACYCLOVIR. [Concomitant]
     Active Substance: ACYCLOVIR
     Indication: PROPHYLAXIS
     Route: 048
     Dates: start: 20150227
  3. SULFAMETHOXAZOLE-TRIMETHOPRIM [Concomitant]
     Active Substance: SULFAMETHOXAZOLE\TRIMETHOPRIM
     Indication: PRODUCT USED FOR UNKNOWN INDICATION
     Route: 065
  4. BACTRIM [Concomitant]
     Active Substance: SULFAMETHOXAZOLE\TRIMETHOPRIM
     Indication: PROPHYLAXIS
     Dosage: 1
     Route: 048
     Dates: start: 20150227
  5. VELCADE [Suspect]
     Active Substance: BORTEZOMIB
     Indication: PLASMA CELL MYELOMA
     Route: 058
     Dates: start: 20150310, end: 20150515
  6. ASPIRIN LOW DOSE [Concomitant]
     Active Substance: ASPIRIN
     Indication: ANTICOAGULANT THERAPY
     Route: 048
  7. DEXAMETHASONE. [Concomitant]
     Active Substance: DEXAMETHASONE
     Indication: PLASMA CELL MYELOMA
     Dosage: 20-40MG
     Route: 065
     Dates: start: 20150310

REACTIONS (2)
  - Neuropathy peripheral [Not Recovered/Not Resolved]
  - Deep vein thrombosis [Unknown]

NARRATIVE: CASE EVENT DATE: 20150515
